FAERS Safety Report 8131210-8 (Version None)
Quarter: 2012Q1

REPORT INFORMATION
  Report Type: 
  Country: None (occurrence: None)
  Receive Date: 20120103
  Receipt Date: 20111117
  Transmission Date: 20120608
  Serious: No
  Sender: FDA-Public Use
  Company Number: AE-2011-003652

PATIENT
  Age: 54 Year
  Sex: Female
  Weight: 78.0187 kg

DRUGS (7)
  1. RIBAVIRIN [Concomitant]
  2. INCIVEK [Suspect]
     Dosage: 2250 (750 MG,3 IN 1 D),ORAL
     Route: 048
     Dates: start: 20111017
  3. LACTULOSE [Concomitant]
  4. VIZTOZA [Concomitant]
  5. TOPOL (METOPROLOL SUCCINATE) [Concomitant]
  6. PEGASYS [Concomitant]
  7. NEOMYCIN (NEOMYCIN) [Concomitant]

REACTIONS (1)
  - HAEMOGLOBIN DECREASED [None]
